FAERS Safety Report 20643180 (Version 1)
Quarter: 2022Q1

REPORT INFORMATION
  Report Type: Report from Study
  Country: US (occurrence: US)
  Receive Date: 20220328
  Receipt Date: 20220328
  Transmission Date: 20220424
  Serious: No
  Sender: FDA-Public Use
  Company Number: US-NOVARTISTESTPH-NVSC2022US069926

PATIENT
  Sex: Female

DRUGS (2)
  1. PIQRAY [Suspect]
     Active Substance: ALPELISIB
     Indication: Breast cancer
     Dosage: 300 MG, QD
     Route: 048
     Dates: start: 202108
  2. PIQRAY [Suspect]
     Active Substance: ALPELISIB
     Dosage: 250 UNK
     Route: 065

REACTIONS (2)
  - Dyspepsia [Recovering/Resolving]
  - Diarrhoea [Recovering/Resolving]
